FAERS Safety Report 10485649 (Version 1)
Quarter: 2014Q4

REPORT INFORMATION
  Report Type: Spontaneous
  Country: ES (occurrence: ES)
  Receive Date: 20141001
  Receipt Date: 20141001
  Transmission Date: 20150528
  Serious: Yes (Death, Hospitalization)
  Sender: FDA-Public Use
  Company Number: PHHY2014ES125696

PATIENT
  Age: 74 Year
  Sex: Female

DRUGS (10)
  1. PREDNISONE. [Suspect]
     Active Substance: PREDNISONE
     Indication: BURKITT^S LYMPHOMA STAGE IV
  2. DEXAMETHASONE. [Suspect]
     Active Substance: DEXAMETHASONE
     Indication: BURKITT^S LYMPHOMA STAGE IV
  3. RASBURICASE [Suspect]
     Active Substance: RASBURICASE
     Indication: BURKITT^S LYMPHOMA STAGE IV
  4. METHOTREXATE [Suspect]
     Active Substance: METHOTREXATE
     Indication: BURKITT^S LYMPHOMA STAGE IV
  5. CYTARABINE. [Suspect]
     Active Substance: CYTARABINE
     Indication: BURKITT^S LYMPHOMA STAGE IV
  6. RITUXIMAB [Suspect]
     Active Substance: RITUXIMAB
     Indication: BURKITT^S LYMPHOMA STAGE IV
  7. CYCLOPHOSPHAMIDE. [Suspect]
     Active Substance: CYCLOPHOSPHAMIDE
     Indication: BURKITT^S LYMPHOMA STAGE IV
  8. IFOSFAMIDE. [Suspect]
     Active Substance: IFOSFAMIDE
     Indication: BURKITT^S LYMPHOMA STAGE IV
  9. LIPOSOMAL CYTARABINE [Suspect]
     Active Substance: CYTARABINE
     Indication: BURKITT^S LYMPHOMA STAGE IV
     Route: 037
  10. ETOPOSIDE. [Suspect]
     Active Substance: ETOPOSIDE
     Indication: BURKITT^S LYMPHOMA STAGE IV

REACTIONS (13)
  - Dyspnoea [Fatal]
  - Productive cough [Fatal]
  - Pyrexia [Unknown]
  - Candida infection [Unknown]
  - Lung infiltration [Unknown]
  - Mucosal inflammation [Unknown]
  - Fungal infection [Unknown]
  - Body temperature increased [Unknown]
  - Staphylococcal infection [Unknown]
  - Mouth ulceration [Unknown]
  - Respiratory failure [Fatal]
  - Cough [Fatal]
  - Neutropenia [Unknown]
